FAERS Safety Report 5864448-0 (Version None)
Quarter: 2008Q3

REPORT INFORMATION
  Report Type: 
  Country: None (occurrence: None)
  Receive Date: 20080829
  Receipt Date: 20080825
  Transmission Date: 20090109
  Serious: Yes (Hospitalization)
  Sender: FDA-Public Use
  Company Number: US-RB-003562-08

PATIENT
  Age: 64 Year
  Sex: Male
  Weight: 58.5 kg

DRUGS (6)
  1. SUBOXONE [Suspect]
     Route: 060
     Dates: start: 20080821, end: 20080821
  2. KLONOPIN [Concomitant]
     Indication: PANIC ATTACK
     Dosage: DOSAGE UNKNOWN
     Route: 048
     Dates: start: 20050101
  3. OMEPRAZOLE [Concomitant]
     Dosage: DOSAGE UNKNOWN
     Route: 048
  4. ZYPREXA [Concomitant]
     Indication: BIPOLAR DISORDER
     Dosage: DOSAGE UNKNOWN
     Route: 048
     Dates: start: 20080401
  5. LITHIUM CARBONATE [Concomitant]
     Indication: BIPOLAR DISORDER
     Dosage: DOSAGE UNKNOWN
     Route: 048
     Dates: start: 20070101
  6. DILTIAZEM HCL [Concomitant]
     Indication: HYPERTENSION
     Dosage: DOSAGE UNKNOWN
     Route: 048
     Dates: start: 20080801

REACTIONS (4)
  - BRADYCARDIA [None]
  - HYPOTENSION [None]
  - PULSE PRESSURE DECREASED [None]
  - SOMNOLENCE [None]
